FAERS Safety Report 17499323 (Version 2)
Quarter: 2021Q3

REPORT INFORMATION
  Report Type: Spontaneous
  Country: US (occurrence: BR)
  Receive Date: 20200304
  Receipt Date: 20210728
  Transmission Date: 20211014
  Serious: Yes (Hospitalization)
  Sender: FDA-Public Use
  Company Number: BR-BIOMARINAP-BR-2020-128818

PATIENT
  Age: 11 Year
  Sex: Female
  Weight: 27 kg

DRUGS (1)
  1. ALDURAZYME [Suspect]
     Active Substance: LARONIDASE
     Indication: MUCOPOLYSACCHARIDOSIS
     Dosage: 8 DOSAGE FORM, Q15D
     Route: 041
     Dates: start: 20090402

REACTIONS (4)
  - Influenza [Recovered/Resolved]
  - Influenza [Recovered/Resolved]
  - Inappropriate schedule of product administration [Unknown]
  - Pyrexia [Recovered/Resolved]

NARRATIVE: CASE EVENT DATE: 20181004
